FAERS Safety Report 10308202 (Version 1)
Quarter: 2014Q3

REPORT INFORMATION
  Report Type: Spontaneous
  Country: US (occurrence: US)
  Receive Date: 20140716
  Receipt Date: 20140716
  Transmission Date: 20150326
  Serious: No
  Sender: FDA-Public Use
  Company Number: US-AMGEN INC.-USASP2014051895

PATIENT
  Age: 58 Year
  Sex: Male

DRUGS (1)
  1. ENBREL [Suspect]
     Active Substance: ETANERCEPT
     Indication: RHEUMATOID ARTHRITIS
     Dosage: 50 MG, QWK
     Route: 065
     Dates: start: 20140313, end: 201406

REACTIONS (5)
  - Musculoskeletal stiffness [Recovered/Resolved]
  - Arthralgia [Recovered/Resolved]
  - Malaise [Recovered/Resolved]
  - Back pain [Recovered/Resolved]
  - Mobility decreased [Recovered/Resolved]
